FAERS Safety Report 11519659 (Version 1)
Quarter: 2015Q3

REPORT INFORMATION
  Report Type: Spontaneous
  Country: US (occurrence: US)
  Receive Date: 20150918
  Receipt Date: 20150918
  Transmission Date: 20151125
  Serious: No
  Sender: FDA-Public Use
  Company Number: US-ASTRAZENECA-2015SE87507

PATIENT
  Sex: Female

DRUGS (3)
  1. BYDUREON [Suspect]
     Active Substance: EXENATIDE
     Route: 058
  2. TRIAMTERENE. [Concomitant]
     Active Substance: TRIAMTERENE
  3. TRIAMTERENE. [Concomitant]
     Active Substance: TRIAMTERENE

REACTIONS (4)
  - Intentional device misuse [Unknown]
  - Drug dose omission [Unknown]
  - Product quality issue [Unknown]
  - Injection site pain [Unknown]
